FAERS Safety Report 8776995 (Version 3)
Quarter: 2012Q4

REPORT INFORMATION
  Report Type: 
  Country: JP (occurrence: JP)
  Receive Date: 20120911
  Receipt Date: 20121105
  Transmission Date: 20130627
  Serious: Yes (Other)
  Sender: FDA-Public Use
  Company Number: JP-GLAXOSMITHKLINE-B0828744A

PATIENT
  Age: 69 Year
  Sex: Male

DRUGS (5)
  1. LAMICTAL [Suspect]
     Indication: BIPOLAR DISORDER
     Dosage: 25MG Alternate days
     Route: 048
     Dates: start: 20120830, end: 20120911
  2. DEPAKENE-R [Suspect]
     Indication: PRODUCT USED FOR UNKNOWN INDICATION
     Dosage: 400MG Twice per day
     Route: 048
     Dates: start: 20120518
  3. SOLUMEDROL(METHYLPREDNISOLONE SODIUM SUCCINATE) INFUSION [Suspect]
     Indication: PRODUCT USED FOR UNKNOWN INDICATION
     Dosage: 1000MG Per day
     Route: 042
     Dates: start: 20120412, end: 20120414
  4. PREDONINE [Suspect]
     Indication: PRODUCT USED FOR UNKNOWN INDICATION
     Dosage: 30MG Twice per day
     Route: 065
  5. PREDONINE [Suspect]
     Indication: PRODUCT USED FOR UNKNOWN INDICATION
     Dosage: 20MG Twice per day
     Route: 065

REACTIONS (1)
  - Haemorrhage subcutaneous [Recovering/Resolving]
